FAERS Safety Report 9438272 (Version 1)
Quarter: 2013Q3

REPORT INFORMATION
  Report Type: Spontaneous
  Country: US (occurrence: US)
  Receive Date: 20130802
  Receipt Date: 20130802
  Transmission Date: 20140515
  Serious: No
  Sender: FDA-Public Use
  Company Number: US-BRISTOL-MYERS SQUIBB COMPANY-17002668

PATIENT
  Age: 78 Year
  Sex: Female

DRUGS (10)
  1. COUMADIN [Suspect]
     Indication: CARDIOMEGALY
     Dosage: 4MG SUN, TUE, THUR, SAT AND 2 MG MON ED FRI
     Route: 048
     Dates: start: 20060621
  2. COUMADIN [Suspect]
     Indication: FLUID RETENTION
     Dosage: 4MG SUN, TUE, THUR, SAT AND 2 MG MON ED FRI
     Route: 048
     Dates: start: 20060621
  3. COUMADIN [Suspect]
     Indication: ATRIAL FIBRILLATION
     Dosage: 4MG SUN, TUE, THUR, SAT AND 2 MG MON ED FRI
     Route: 048
     Dates: start: 20060621
  4. SPIRONOLACTONE [Concomitant]
  5. PRAVASTATIN SODIUM [Concomitant]
  6. ENALAPRIL [Concomitant]
  7. SYNTHROID [Concomitant]
  8. DIGOXIN [Concomitant]
  9. FUROSEMIDE [Concomitant]
  10. METOPROLOL [Concomitant]

REACTIONS (1)
  - Toothache [Unknown]
